FAERS Safety Report 9262986 (Version 1)
Quarter: 2013Q2

REPORT INFORMATION
  Report Type: Spontaneous
  Country: US (occurrence: None)
  Receive Date: 20130426
  Receipt Date: 20130426
  Transmission Date: 20140414
  Serious: Yes (Other)
  Sender: FDA-Public Use
  Company Number: None

PATIENT
  Age: 42 Year
  Sex: Female
  Weight: 54.43 kg

DRUGS (12)
  1. TELAPREVIR [Suspect]
     Indication: HEPATITIS C VIRUS TEST POSITIVE
     Dates: start: 20120714, end: 20121006
  2. TELAPREVIR [Suspect]
     Dates: start: 20120714, end: 20121006
  3. PEGINTERFERON [Concomitant]
  4. RIBAVIRIN [Concomitant]
  5. HYDROCHLOROTHIAZIDE [Concomitant]
  6. OMEPRAZOLE [Concomitant]
  7. SCOPOLAMINE [Concomitant]
  8. MOXIFLOXACIN [Concomitant]
  9. LORATADINE [Concomitant]
  10. ALBUTEROL [Concomitant]
  11. FLUTICASONE-SALMETEROL [Concomitant]
  12. FLUTICASONE [Concomitant]

REACTIONS (7)
  - Rash pruritic [None]
  - Rash [None]
  - Rash [None]
  - Rash [None]
  - Anorectal disorder [None]
  - Inflammation [None]
  - Anorectal discomfort [None]
